FAERS Safety Report 21613866 (Version 1)
Quarter: 2022Q4

REPORT INFORMATION
  Report Type: Spontaneous
  Country: JP (occurrence: JP)
  Receive Date: 20221118
  Receipt Date: 20221118
  Transmission Date: 20230113
  Serious: Yes (Hospitalization)
  Sender: FDA-Public Use
  Company Number: JP-MACLEODS PHARMACEUTICALS US LTD-MAC2022038254

PATIENT

DRUGS (15)
  1. CLOBETASOL [Interacting]
     Active Substance: CLOBETASOL
     Indication: Pemphigoid
     Dosage: UNK (CLOBETASOL PROPIONATE)
     Route: 061
  2. PREDNISOLONE [Interacting]
     Active Substance: PREDNISOLONE
     Indication: Pemphigoid
     Dosage: 35 MILLIGRAM, QD; (0.8 MG/KG)
     Route: 048
  3. PREDNISOLONE [Interacting]
     Active Substance: PREDNISOLONE
     Dosage: 40 MILLIGRAM, QD (1.0 MG/KG)
     Route: 048
  4. PREDNISOLONE [Interacting]
     Active Substance: PREDNISOLONE
     Dosage: 30 MILLIGRAM, QD
     Route: 048
  5. PREDNISOLONE [Interacting]
     Active Substance: PREDNISOLONE
     Dosage: 5 MILLIGRAM, QD
     Route: 048
  6. METHYLPREDNISOLONE [Interacting]
     Active Substance: METHYLPREDNISOLONE
     Indication: Pemphigoid
     Dosage: 1000 MILLIGRAM, QD (FOR 3 DAYS)
     Route: 042
  7. METHYLPREDNISOLONE [Interacting]
     Active Substance: METHYLPREDNISOLONE
     Dosage: UNK
     Route: 042
  8. PHENYTOIN [Interacting]
     Active Substance: PHENYTOIN
     Indication: Epilepsy
     Dosage: UNK
     Route: 065
  9. PHENOBARBITAL [Interacting]
     Active Substance: PHENOBARBITAL
     Indication: Epilepsy
     Dosage: UNK
     Route: 065
  10. MINOCYCLINE [Suspect]
     Active Substance: MINOCYCLINE HYDROCHLORIDE
     Indication: Pemphigoid
     Dosage: 100 MILLIGRAM, QD
     Route: 065
  11. BETAMETHASONE [Suspect]
     Active Substance: BETAMETHASONE
     Indication: Product used for unknown indication
     Dosage: 4 MILLIGRAM, QD
     Route: 065
  12. HUMAN IMMUNOGLOBULIN G [Suspect]
     Active Substance: HUMAN IMMUNOGLOBULIN G
     Indication: Product used for unknown indication
     Dosage: 400 MILLIGRAM/KILOGRAM, QD; FOR 5 DAYS
     Route: 042
  13. DAPSONE [Suspect]
     Active Substance: DAPSONE
     Indication: Product used for unknown indication
     Dosage: 75 MILLIGRAM, QD
     Route: 048
  14. VALPROATE SODIUM [Interacting]
     Active Substance: VALPROATE SODIUM
     Indication: Epilepsy
     Dosage: UNK
     Route: 065
  15. ZONISAMIDE [Interacting]
     Active Substance: ZONISAMIDE
     Indication: Epilepsy
     Dosage: UNK
     Route: 065

REACTIONS (4)
  - Pemphigoid [Recovered/Resolved]
  - Condition aggravated [Recovered/Resolved]
  - Drug interaction [Recovered/Resolved]
  - Drug ineffective [Unknown]
